FAERS Safety Report 21865622 (Version 1)
Quarter: 2023Q1

REPORT INFORMATION
  Report Type: Spontaneous
  Country: US (occurrence: US)
  Receive Date: 20230116
  Receipt Date: 20230116
  Transmission Date: 20230418
  Serious: No
  Sender: FDA-Public Use
  Company Number: US-CADILA HEALTHCARE LIMITED-US-ZYDUS-073965

PATIENT

DRUGS (1)
  1. ATORVASTATIN [Suspect]
     Active Substance: ATORVASTATIN
     Indication: Blood cholesterol
     Dosage: 5 MILLIGRAM, QD
     Route: 048
     Dates: start: 202104

REACTIONS (2)
  - Rash [Not Recovered/Not Resolved]
  - Incorrect product dosage form administered [Not Recovered/Not Resolved]

NARRATIVE: CASE EVENT DATE: 20210801
